FAERS Safety Report 5395009-8 (Version None)
Quarter: 2007Q3

REPORT INFORMATION
  Report Type: 
  Country: None (occurrence: None)
  Receive Date: 20070724
  Receipt Date: 20070712
  Transmission Date: 20080115
  Serious: Yes (Other)
  Sender: FDA-Public Use
  Company Number: GB-SP-2007-02440

PATIENT
  Age: 42 Year
  Sex: Male

DRUGS (1)
  1. IMMUCYST [Suspect]
     Indication: CARCINOMA IN SITU OF BLADDER
     Route: 043
     Dates: start: 20070615

REACTIONS (4)
  - ABDOMINAL PAIN [None]
  - DYSURIA [None]
  - HAEMATURIA [None]
  - SLEEP DISORDER [None]
